FAERS Safety Report 6018400-5 (Version None)
Quarter: 2008Q4

REPORT INFORMATION
  Report Type: 
  Country: None (occurrence: None)
  Receive Date: 20081223
  Receipt Date: 20081216
  Transmission Date: 20090506
  Serious: Yes (Life-Threatening)
  Sender: FDA-Public Use
  Company Number: FR-GILEAD-2008-0019533

PATIENT
  Sex: Female
  Weight: 50 kg

DRUGS (3)
  1. TRUVADA [Suspect]
     Indication: ACCIDENTAL EXPOSURE
     Route: 048
     Dates: start: 20081202, end: 20081209
  2. KALETRA [Suspect]
     Indication: ACCIDENTAL EXPOSURE
     Route: 048
     Dates: start: 20081128, end: 20081209
  3. COMBIVIR [Concomitant]

REACTIONS (2)
  - RASH MORBILLIFORM [None]
  - RASH PRURITIC [None]
